FAERS Safety Report 4408642-4 (Version None)
Quarter: 2004Q3

REPORT INFORMATION
  Report Type: 
  Country: None (occurrence: None)
  Receive Date: 20040723
  Receipt Date: 20040715
  Transmission Date: 20050211
  Serious: Yes (Hospitalization)
  Sender: FDA-Public Use
  Company Number: 2004-0007221

PATIENT
  Age: 64 Year
  Sex: Female

DRUGS (6)
  1. ADEFOVIR DIPIVOXIL        (ADEFOVIR DIPIVOXIL) [Suspect]
     Indication: HEPATITIS B
     Dosage: SEE IMAGE
     Route: 048
     Dates: start: 20030806, end: 20030922
  2. ADEFOVIR DIPIVOXIL        (ADEFOVIR DIPIVOXIL) [Suspect]
     Indication: HEPATITIS B
     Dosage: SEE IMAGE
     Route: 048
     Dates: start: 20030924, end: 20031214
  3. ADEFOVIR DIPIVOXIL        (ADEFOVIR DIPIVOXIL) [Suspect]
     Indication: HEPATITIS B
     Dosage: SEE IMAGE
     Route: 048
     Dates: start: 20031215, end: 20040613
  4. ADEFOVIR DIPIVOXIL        (ADEFOVIR DIPIVOXIL) [Suspect]
     Indication: HEPATITIS B
     Dosage: SEE IMAGE
     Route: 048
     Dates: start: 20040614
  5. LASIX [Concomitant]
  6. ALDACTONE [Concomitant]

REACTIONS (2)
  - CREATININE RENAL CLEARANCE DECREASED [None]
  - HYPERGLYCAEMIA [None]
